FAERS Safety Report 5218611-2 (Version None)
Quarter: 2007Q1

REPORT INFORMATION
  Report Type: 
  Country: None (occurrence: None)
  Receive Date: 20070122
  Receipt Date: 20070111
  Transmission Date: 20070707
  Serious: Yes (Other)
  Sender: FDA-Public Use
  Company Number: GXKR2007GB00750

PATIENT
  Age: 65 Year
  Sex: Male

DRUGS (16)
  1. VERAPAMIL [Suspect]
     Indication: ATRIAL FIBRILLATION
     Dosage: 40 MG, TID, ORAL
     Route: 048
     Dates: start: 20061128
  2. WARFARIN SODIUM [Suspect]
     Dosage: 1 MG, ORAL
     Route: 048
  3. AMOXICILLIN [Concomitant]
  4. AZATHIOPRINE [Concomitant]
  5. CARBOCISTEINE (CARBOCISTEINE) [Concomitant]
  6. COLISTIMETHATE SODIUM (COLISTIN MESILATE SODIUM) [Concomitant]
  7. DOXAZOSIN (DOXAZOSIN) [Concomitant]
  8. HYDROXYCHLOROQUINE SULFATE [Concomitant]
  9. LANSOPRAZOLE [Concomitant]
  10. ORAMORPH SR [Concomitant]
  11. PREDNISOLONE [Concomitant]
  12. SALBUTAMOL (SALBUTAMOL) [Concomitant]
  13. SALMETEROL (SALMETEROL) [Concomitant]
  14. SIMVASTATIN [Concomitant]
  15. SODIUM CHLORIDE 0.9% [Concomitant]
  16. TIOTROPIUM BROMIDE (TIOTROPIUM BROMIDE) [Concomitant]

REACTIONS (2)
  - DRUG INTERACTION [None]
  - DRUG LEVEL INCREASED [None]
